FAERS Safety Report 9820174 (Version 1)
Quarter: 2013Q4

REPORT INFORMATION
  Report Type: Spontaneous
  Country: US (occurrence: None)
  Receive Date: 20131021
  Receipt Date: 20131021
  Transmission Date: 20140711
  Serious: Yes (Hospitalization)
  Sender: FDA-Public Use
  Company Number: 2013SCP005973

PATIENT
  Sex: Male

DRUGS (1)
  1. FENTANYL [Suspect]
     Indication: BACK PAIN
     Dosage: 1 PATCH, EVERY 72 HOURS, TRANSDERMAL
     Dates: start: 201303, end: 201306

REACTIONS (7)
  - Application site ulcer [None]
  - Application site infection [None]
  - Application site vesicles [None]
  - Application site swelling [None]
  - Application site reaction [None]
  - Confusional state [None]
  - Product adhesion issue [None]
